FAERS Safety Report 9688796 (Version 1)
Quarter: 2013Q4

REPORT INFORMATION
  Report Type: Spontaneous
  Country: US (occurrence: US)
  Receive Date: 20131114
  Receipt Date: 20131114
  Transmission Date: 20140711
  Serious: Yes (Other)
  Sender: FDA-Public Use
  Company Number: US-PFIZER INC-2013318937

PATIENT
  Age: 74 Year
  Sex: Female
  Weight: 81.63 kg

DRUGS (6)
  1. TOVIAZ [Suspect]
     Indication: INCONTINENCE
     Dosage: 8 MG, 1X/DAY
  2. NEURONTIN [Suspect]
     Indication: NEUROPATHY PERIPHERAL
     Dosage: 600 MG, 3X/DAY
  3. DIPHENOXYLATE W/ATROPINE SULFATE [Concomitant]
     Indication: DIARRHOEA
     Dosage: 2.5 MG AS NEEDED
  4. DIPHENOXYLATE W/ATROPINE SULFATE [Concomitant]
     Indication: IRRITABLE BOWEL SYNDROME
  5. ESCITALOPRAM OXALATE [Concomitant]
     Indication: DEPRESSION
     Dosage: 20 MG, 1X/DAY
  6. TRIMETHOPRIM [Concomitant]
     Indication: CYSTITIS
     Dosage: 100 MG, 1X/DAY

REACTIONS (4)
  - Hypertension [Unknown]
  - Expired drug administered [Unknown]
  - Intentional drug misuse [Unknown]
  - Insomnia [Unknown]
